FAERS Safety Report 26098875 (Version 1)
Quarter: 2025Q4

REPORT INFORMATION
  Report Type: Spontaneous
  Country: GB (occurrence: GB)
  Receive Date: 20251127
  Receipt Date: 20251127
  Transmission Date: 20260117
  Serious: Yes (Other)
  Sender: ALKEM
  Company Number: None

PATIENT
  Age: 68 Year

DRUGS (18)
  1. MYCOPHENOLATE MOFETIL [Suspect]
     Active Substance: MYCOPHENOLATE MOFETIL
     Indication: Product used for unknown indication
     Dosage: 2 DOSAGE FORM, BID (TABLET)
     Route: 065
  2. ALFACALCIDOL [Concomitant]
     Active Substance: ALFACALCIDOL
     Indication: Product used for unknown indication
     Dosage: 1 DOSAGE FORM (TAKE ONE CAPSULE ON MONDAY-WEDNESDAY-FRIDAY)
     Route: 065
  3. BISOPROLOL [Concomitant]
     Active Substance: BISOPROLOL
     Indication: Product used for unknown indication
     Dosage: 1 DOSAGE FORM, QD
     Route: 065
  4. FAMOTIDINE [Concomitant]
     Active Substance: FAMOTIDINE
     Indication: Product used for unknown indication
     Dosage: 1 DOSAGE FORM, QD
     Route: 065
  5. FLUOXETINE [Concomitant]
     Active Substance: FLUOXETINE HYDROCHLORIDE
     Indication: Product used for unknown indication
     Dosage: 1 DOSAGE FORM, QOD (EACH DAY OTHER)
     Route: 065
  6. FLUOXETINE [Concomitant]
     Active Substance: FLUOXETINE HYDROCHLORIDE
     Dosage: 1 DOSAGE FORM, QD
     Route: 065
  7. FLUTICASONE FUROATE [Concomitant]
     Active Substance: FLUTICASONE FUROATE
     Indication: Product used for unknown indication
     Dosage: UNK, OD (TWO SPRAYS TO BE USED IN EACH NOSTRIL ONCE A DAY)
     Route: 045
  8. FUROSEMIDE [Concomitant]
     Active Substance: FUROSEMIDE
     Indication: Product used for unknown indication
     Dosage: ONE TO BE TAKEN EACH MORNING AND ONE AT LUNCHTIME)
     Route: 065
  9. Huxd3 [Concomitant]
     Indication: Product used for unknown indication
     Dosage: 1 DOSAGE FORM (20,000 UNIT CAPSULES TAKE 1 CAPSULE ONCE A MONTH)
     Route: 065
  10. LINAGLIPTIN [Concomitant]
     Active Substance: LINAGLIPTIN
     Indication: Product used for unknown indication
     Dosage: 1 DOSAGE FORM, QD (ONE TO BE TAKEN EACH DAY S)
     Route: 065
  11. MAGNESIUM [Concomitant]
     Active Substance: MAGNESIUM
     Indication: Product used for unknown indication
     Dosage: UNK
     Route: 065
  12. Over the counter (OTC) Multivitamin gummies [Concomitant]
     Indication: Product used for unknown indication
     Dosage: UNK
     Route: 065
  13. OTC Paracetamol [Concomitant]
     Indication: Arthralgia
     Dosage: UNK, PRN (WHEN REQUIRED)
     Route: 065
  14. SIMVASTATIN [Concomitant]
     Active Substance: SIMVASTATIN
     Indication: Product used for unknown indication
     Dosage: UNK, HS (AT NIGHT)
     Route: 065
  15. SODIUM BICARBONATE [Concomitant]
     Active Substance: SODIUM BICARBONATE
     Indication: Product used for unknown indication
     Dosage: 4 DOSAGE FORM, BID
     Route: 065
  16. VITAMIN D3 [Concomitant]
     Active Substance: CHOLECALCIFEROL
     Indication: Product used for unknown indication
     Dosage: UNK
     Route: 065
  17. WARFARIN [Concomitant]
     Active Substance: WARFARIN
     Indication: Product used for unknown indication
     Dosage: UNK, 1 MILLIGRAM TABLET, TAKE AS INSTRUCTED BY ANTICOAGULANT CLINIC)
     Route: 065
  18. WARFARIN [Concomitant]
     Active Substance: WARFARIN
     Dosage: UNK, 3 MILLIGRAM TABLET, TAKE AS INSTRUCTED BY ANTICOAGULANT CLINIC)
     Route: 065

REACTIONS (1)
  - Cytomegalovirus colitis [Unknown]
